FAERS Safety Report 9628919 (Version 1)
Quarter: 2013Q4

REPORT INFORMATION
  Report Type: Spontaneous
  Country: US (occurrence: US)
  Receive Date: 20131017
  Receipt Date: 20131017
  Transmission Date: 20140711
  Serious: No
  Sender: FDA-Public Use
  Company Number: US-009507513-1310USA007028

PATIENT
  Sex: Female

DRUGS (3)
  1. JANUVIA [Suspect]
     Indication: DIABETES MELLITUS
     Dosage: 100 MG, UNK
     Route: 048
  2. JANUVIA [Suspect]
     Dosage: 100 MG, UNK
     Route: 048
  3. METFORMIN [Concomitant]
     Dosage: 2000 MG, UNK

REACTIONS (1)
  - Diarrhoea [Unknown]
